FAERS Safety Report 7553345-0 (Version None)
Quarter: 2011Q2

REPORT INFORMATION
  Report Type: 
  Country: None (occurrence: None)
  Receive Date: 20110617
  Receipt Date: 20110615
  Transmission Date: 20111010
  Serious: Yes (Hospitalization)
  Sender: FDA-Public Use
  Company Number: US-BRISTOL-MYERS SQUIBB COMPANY-15838006

PATIENT
  Age: 73 Year
  Sex: Male
  Weight: 73 kg

DRUGS (3)
  1. CISPLATIN [Suspect]
     Indication: OESOPHAGEAL CARCINOMA
     Dosage: LAST ADMINS ON 6JUN11,TOTAL OF 6 DOSES TOTAL DOSE: 234 MG
     Dates: start: 20110502
  2. ERBITUX [Suspect]
     Indication: OESOPHAGEAL CARCINOMA
     Dosage: LAST ADMINS ON 6JUN11,TOTAL OF 6 DOSES TOTAL DOSE: 3222 MG
     Dates: start: 20110502
  3. TAXOL [Suspect]
     Indication: OESOPHAGEAL CARCINOMA
     Dosage: LAST ADMINS ON 6JUN11,TOTAL OF 6 DOSES TOTAL DOSE: 576 MG
     Dates: start: 20110502

REACTIONS (1)
  - DYSPHAGIA [None]
